FAERS Safety Report 6042981-9 (Version None)
Quarter: 2009Q1

REPORT INFORMATION
  Report Type: 
  Country: None (occurrence: None)
  Receive Date: 20090119
  Receipt Date: 20090109
  Transmission Date: 20090719
  Serious: Yes (Hospitalization)
  Sender: FDA-Public Use
  Company Number: GB-ROCHE-608116

PATIENT
  Sex: Female

DRUGS (4)
  1. ORLISTAT [Suspect]
     Indication: OBESITY
     Route: 048
     Dates: start: 20081006, end: 20090103
  2. VENLAFAXINE HCL [Concomitant]
     Indication: DEPRESSION
     Route: 048
  3. SERETIDE [Concomitant]
     Indication: ASTHMA
     Route: 055
  4. VENTOLIN [Concomitant]
     Indication: ASTHMA
     Dosage: DOSAGE: AS REQUIRED.
     Route: 055

REACTIONS (1)
  - HERNIA [None]
